FAERS Safety Report 8988928 (Version 1)
Quarter: 2012Q4

REPORT INFORMATION
  Report Type: 
  Country: US (occurrence: US)
  Receive Date: 20121228
  Receipt Date: 20121228
  Transmission Date: 20130627
  Serious: No
  Sender: FDA-Public Use
  Company Number: US-009507513-1212USA009871

PATIENT
  Sex: Female

DRUGS (4)
  1. LISINOPRIL [Suspect]
  2. HYDROCHLOROTHIAZIDE [Concomitant]
  3. ATENOLOL [Concomitant]
  4. VITAMIN D (UNSPECIFIED) [Concomitant]

REACTIONS (2)
  - Erythema [Unknown]
  - Rhinorrhoea [Unknown]
